FAERS Safety Report 8092718-7 (Version None)
Quarter: 2012Q1

REPORT INFORMATION
  Report Type: 
  Country: None (occurrence: None)
  Receive Date: 20120128
  Receipt Date: 20110804
  Transmission Date: 20120608
  Serious: No
  Sender: FDA-Public Use
  Company Number: US-ABBOTT-11P-163-0844089-00

PATIENT
  Age: 66 Year
  Sex: Female

DRUGS (13)
  1. AVAPRO [Concomitant]
     Indication: PRODUCT USED FOR UNKNOWN INDICATION
     Dosage: DAILY
  2. GLIPIZIDE [Concomitant]
     Indication: PRODUCT USED FOR UNKNOWN INDICATION
  3. AMITRIPTYLINE HCL [Concomitant]
     Indication: PRODUCT USED FOR UNKNOWN INDICATION
     Dosage: DAILY
  4. MELOXICAM [Concomitant]
     Indication: PRODUCT USED FOR UNKNOWN INDICATION
     Dosage: DAILY
  5. UNKNOWN TOPICAL CREAM [Concomitant]
     Indication: FUNGAL INFECTION
     Route: 061
  6. MERCAPTOPURINE [Concomitant]
     Indication: PRODUCT USED FOR UNKNOWN INDICATION
  7. HUMIRA [Suspect]
     Indication: CROHN'S DISEASE
     Dates: start: 20090801
  8. METFORMIN HCL [Concomitant]
     Indication: PRODUCT USED FOR UNKNOWN INDICATION
  9. INDAPAMIDE [Concomitant]
     Indication: PRODUCT USED FOR UNKNOWN INDICATION
     Dosage: DAILY
  10. PAXIL [Concomitant]
     Indication: PRODUCT USED FOR UNKNOWN INDICATION
     Dosage: DAILY
  11. LASIX [Concomitant]
     Indication: PRODUCT USED FOR UNKNOWN INDICATION
     Dosage: DAILY
  12. ASPIRIN [Concomitant]
     Indication: PRODUCT USED FOR UNKNOWN INDICATION
     Dosage: DAILY
  13. CYCLOBENZAPRINE [Concomitant]
     Indication: PRODUCT USED FOR UNKNOWN INDICATION

REACTIONS (2)
  - LYMPHOEDEMA [None]
  - INJECTION SITE PAIN [None]
